FAERS Safety Report 8005699-9 (Version None)
Quarter: 2011Q4

REPORT INFORMATION
  Report Type: 
  Country: None (occurrence: None)
  Receive Date: 20111223
  Receipt Date: 20111115
  Transmission Date: 20120403
  Serious: Yes (Other)
  Sender: FDA-Public Use
  Company Number: US-ROCHE-791758

PATIENT
  Sex: Female
  Weight: 99.88 kg

DRUGS (2)
  1. MOTRIN [Concomitant]
     Dosage: FREQUENCY: AS NECESSARY
  2. ACCUTANE [Suspect]
     Indication: ACNE
     Route: 048
     Dates: start: 19960901, end: 19970401

REACTIONS (5)
  - INFLAMMATORY BOWEL DISEASE [None]
  - IRRITABLE BOWEL SYNDROME [None]
  - CROHN'S DISEASE [None]
  - BLOOD TRIGLYCERIDES INCREASED [None]
  - ANXIETY [None]
